FAERS Safety Report 5663920-6 (Version None)
Quarter: 2008Q1

REPORT INFORMATION
  Report Type: 
  Country: None (occurrence: None)
  Receive Date: 20080311
  Receipt Date: 20080225
  Transmission Date: 20080703
  Serious: Yes (Other)
  Sender: FDA-Public Use
  Company Number: 2008S1000046

PATIENT
  Age: 25 Year
  Sex: Female

DRUGS (2)
  1. ACITRETIN [Suspect]
     Indication: PSORIASIS
     Dosage: 50 MG;QD;PO
     Route: 048
     Dates: start: 20050101, end: 20071101
  2. ACITRETIN [Suspect]
     Indication: PSORIASIS
     Dosage: 50 MG;QD;PO
     Route: 048
     Dates: start: 20071201, end: 20080101

REACTIONS (3)
  - ABORTION INDUCED [None]
  - DRUG EXPOSURE DURING PREGNANCY [None]
  - PREGNANCY [None]
